FAERS Safety Report 4955862-6 (Version None)
Quarter: 2006Q1

REPORT INFORMATION
  Report Type: 
  Country: None (occurrence: None)
  Receive Date: 20060328
  Receipt Date: 20030128
  Transmission Date: 20060701
  Serious: Yes (Hospitalization)
  Sender: FDA-Public Use
  Company Number: DE-AMGEN-US028707

PATIENT
  Sex: Male
  Weight: 75.5 kg

DRUGS (5)
  1. ETANERCEPT [Suspect]
     Indication: ANKYLOSING SPONDYLITIS
     Route: 058
     Dates: start: 20020904
  2. ISONIAZID [Suspect]
     Dates: start: 20020824, end: 20021209
  3. FOSAMAX [Concomitant]
  4. RANTUDIL [Concomitant]
  5. CALCIUM CARBONATE/COLECALCIFEROL [Concomitant]

REACTIONS (2)
  - DEPRESSION [None]
  - HEPATIC STEATOSIS [None]
